FAERS Safety Report 8052815-9 (Version None)
Quarter: 2012Q1

REPORT INFORMATION
  Report Type: 
  Country: None (occurrence: None)
  Receive Date: 20120105
  Receipt Date: 20111223
  Transmission Date: 20120608
  Serious: Yes (Other)
  Sender: FDA-Public Use
  Company Number: 2011030543

PATIENT
  Age: 62 Year
  Sex: Male

DRUGS (1)
  1. IMMUNE GLOBULIN INTRAVENOUS (HUMAN) [Suspect]
     Indication: MULTIFOCAL MOTOR NEUROPATHY
     Dosage: 2G/KG BW / 0.2G/KG BW / 1.3G/KG BW
     Route: 042

REACTIONS (1)
  - DERMATITIS EXFOLIATIVE [None]
